FAERS Safety Report 18547109 (Version 3)
Quarter: 2021Q1

REPORT INFORMATION
  Report Type: Spontaneous
  Country: CH (occurrence: CH)
  Receive Date: 20201125
  Receipt Date: 20210303
  Transmission Date: 20210419
  Serious: Yes (Hospitalization, Other)
  Sender: FDA-Public Use
  Company Number: CH-ELI_LILLY_AND_COMPANY-CH202011008256

PATIENT
  Age: 40 Year
  Sex: Female
  Weight: 45 kg

DRUGS (4)
  1. TEMESTA [LORAZEPAM] [Concomitant]
     Active Substance: LORAZEPAM
     Indication: ANXIETY
     Dosage: 0.5 DOSAGE FORM, DAILY
     Dates: start: 20150101
  2. SPEDIFEN [IBUPROFEN] [Concomitant]
     Active Substance: IBUPROFEN
     Indication: PRODUCT USED FOR UNKNOWN INDICATION
     Dosage: UNK, TID
     Dates: start: 202005
  3. CIPRALEX MELTZ [Concomitant]
     Active Substance: ESCITALOPRAM OXALATE
     Indication: DEPRESSION
     Dosage: 10 MG, DAILY
     Dates: start: 20150101
  4. TALTZ [Suspect]
     Active Substance: IXEKIZUMAB
     Indication: ANKYLOSING SPONDYLITIS
     Dosage: UNK UNK, UNKNOWN
     Route: 058
     Dates: start: 20200820

REACTIONS (2)
  - Optic neuritis [Recovering/Resolving]
  - Tuberculosis [Not Recovered/Not Resolved]
